FAERS Safety Report 4996512-2 (Version None)
Quarter: 2006Q2

REPORT INFORMATION
  Report Type: 
  Country: None (occurrence: None)
  Receive Date: 20060509
  Receipt Date: 20051109
  Transmission Date: 20061013
  Serious: Yes (Other)
  Sender: FDA-Public Use
  Company Number: PHEH2005US12388

PATIENT
  Age: 65 Year
  Sex: Female

DRUGS (5)
  1. ZELNORM [Suspect]
     Indication: CONSTIPATION
     Route: 048
     Dates: start: 20050501
  2. ZELNORM [Suspect]
     Dosage: UNK, QOD
     Route: 048
     Dates: start: 20050501
  3. ACIPHEX [Concomitant]
     Indication: REFLUX OESOPHAGITIS
  4. SYNTHROID [Concomitant]
     Indication: ANTI-THYROID ANTIBODY
  5. CITRACAL [Concomitant]

REACTIONS (5)
  - ABDOMINAL DISTENSION [None]
  - ASTHENIA [None]
  - DIARRHOEA [None]
  - DIZZINESS [None]
  - ELECTROLYTE IMBALANCE [None]
